FAERS Safety Report 7103057-2 (Version None)
Quarter: 2010Q4

REPORT INFORMATION
  Report Type: 
  Country: None (occurrence: None)
  Receive Date: 20101108
  Receipt Date: 20101026
  Transmission Date: 20110411
  Serious: Yes (Disabling)
  Sender: FDA-Public Use
  Company Number: 742133

PATIENT
  Age: 48 Year
  Sex: Female

DRUGS (3)
  1. FLUDARABINE PHOSPHATE [Suspect]
     Indication: METASTATIC MALIGNANT MELANOMA
     Dosage: 25 MG/M 2 MILLIGRAM(S) /SQ. METER,
  2. CYCLOPHOSPHAMIDE [Suspect]
     Indication: METASTATIC MALIGNANT MELANOMA
     Dosage: 60 MG/KG MILLIGRAM(S) /KILOGRAM,
  3. PROLEUKIN [Concomitant]

REACTIONS (8)
  - ASTHENIA [None]
  - BLINDNESS [None]
  - GLIOSIS [None]
  - HYPOAESTHESIA [None]
  - METASTATIC MALIGNANT MELANOMA [None]
  - NEOPLASM RECURRENCE [None]
  - POTENTIATING DRUG INTERACTION [None]
  - RETINAL DEGENERATION [None]
